FAERS Safety Report 24349914 (Version 1)
Quarter: 2024Q3

REPORT INFORMATION
  Report Type: Spontaneous
  Country: FR (occurrence: FR)
  Receive Date: 20240923
  Receipt Date: 20240923
  Transmission Date: 20241017
  Serious: No
  Sender: ROCHE
  Company Number: FR-ROCHE-3508136

PATIENT
  Age: 3 Year
  Sex: Female
  Weight: 13.1 kg

DRUGS (2)
  1. TAMIFLU [Suspect]
     Active Substance: OSELTAMIVIR PHOSPHATE
     Indication: Influenza
     Dosage: 20 ML 2X/D FOR 5 DAYS
     Route: 048
     Dates: start: 20240206, end: 20240210
  2. TAMIFLU [Suspect]
     Active Substance: OSELTAMIVIR PHOSPHATE
     Dosage: 5 ML IN THE MORNING AND EVENING FOR 5 DAYS
     Route: 048

REACTIONS (2)
  - Overdose [Unknown]
  - Vomiting [Recovered/Resolved]

NARRATIVE: CASE EVENT DATE: 20240206
